FAERS Safety Report 5546032-1 (Version None)
Quarter: 2007Q4

REPORT INFORMATION
  Report Type: 
  Country: None (occurrence: None)
  Receive Date: 20071211
  Receipt Date: 20071019
  Transmission Date: 20080405
  Serious: No
  Sender: FDA-Public Use
  Company Number: US-BRISTOL-MYERS SQUIBB COMPANY-13875877

PATIENT
  Age: 57 Year
  Sex: Female
  Weight: 90 kg

DRUGS (11)
  1. EMSAM [Suspect]
     Indication: MAJOR DEPRESSION
     Route: 062
     Dates: start: 20061114
  2. OXYCONTIN [Concomitant]
  3. AMBIEN CR [Concomitant]
  4. JANUVIA [Concomitant]
  5. OXYCODONE HCL [Concomitant]
  6. KLONOPIN [Concomitant]
  7. ZANAFLEX [Concomitant]
  8. SYNTHROID [Concomitant]
  9. ZYRTEC [Concomitant]
  10. ALBUTEROL [Concomitant]
  11. FLOVENT [Concomitant]
     Route: 055

REACTIONS (3)
  - APPLICATION SITE SCAR [None]
  - HYPERTRICHOSIS [None]
  - RASH [None]
